FAERS Safety Report 15344894 (Version 1)
Quarter: 2018Q3

REPORT INFORMATION
  Report Type: Spontaneous
  Country: US (occurrence: US)
  Receive Date: 20180903
  Receipt Date: 20180903
  Transmission Date: 20181010
  Serious: No
  Sender: FDA-Public Use
  Company Number: US-009507513-1809USA000497

PATIENT
  Sex: Male

DRUGS (1)
  1. SINGULAIR [Suspect]
     Active Substance: MONTELUKAST SODIUM
     Dosage: 10 MG, BEDTIME
     Route: 048
     Dates: start: 201604, end: 20180831

REACTIONS (1)
  - Neuropsychiatric symptoms [Not Recovered/Not Resolved]

NARRATIVE: CASE EVENT DATE: 201802
